FAERS Safety Report 13767650 (Version 2)
Quarter: 2017Q4

REPORT INFORMATION
  Report Type: Spontaneous
  Country: GB (occurrence: GB)
  Receive Date: 20170719
  Receipt Date: 20171123
  Transmission Date: 20180320
  Serious: Yes (Hospitalization, Other)
  Sender: FDA-Public Use
  Company Number: GB-VISTAPHARM, INC.-VER201707-000208

PATIENT
  Age: 32 Year
  Sex: Female

DRUGS (9)
  1. PREDNISOLONE. [Suspect]
     Active Substance: PREDNISOLONE
     Indication: DERMATOMYOSITIS
     Dates: start: 201403
  2. PREDNISOLONE. [Suspect]
     Active Substance: PREDNISOLONE
  3. AZATHIOPRINE. [Suspect]
     Active Substance: AZATHIOPRINE
     Indication: DERMATOMYOSITIS
     Dates: start: 2011
  4. AZATHIOPRINE. [Suspect]
     Active Substance: AZATHIOPRINE
     Dates: start: 201403
  5. PREDNISOLONE. [Suspect]
     Active Substance: PREDNISOLONE
     Dates: start: 201501
  6. RITUXIMAB. [Suspect]
     Active Substance: RITUXIMAB
     Indication: DERMATOMYOSITIS
     Dates: start: 201305
  7. RITUXIMAB. [Suspect]
     Active Substance: RITUXIMAB
     Dates: start: 201501
  8. AZATHIOPRINE. [Suspect]
     Active Substance: AZATHIOPRINE
     Dates: start: 201501
  9. RITUXIMAB. [Suspect]
     Active Substance: RITUXIMAB
     Dates: start: 201403

REACTIONS (3)
  - Meningoencephalitis herpetic [Recovering/Resolving]
  - Pancytopenia [Recovered/Resolved]
  - Anterograde amnesia [Not Recovered/Not Resolved]
